FAERS Safety Report 9796224 (Version 3)
Quarter: 2014Q3

REPORT INFORMATION
  Report Type: Spontaneous
  Country: US (occurrence: US)
  Receive Date: 20140103
  Receipt Date: 20140722
  Transmission Date: 20150326
  Serious: Yes (Death, Other)
  Sender: FDA-Public Use
  Company Number: US-009507513-2010SP038538

PATIENT
  Sex: Female
  Weight: 61.69 kg

DRUGS (2)
  1. PROVENTIL [Concomitant]
     Active Substance: ALBUTEROL
     Indication: ASTHMA
     Dates: start: 1984, end: 2009
  2. NUVARING [Suspect]
     Active Substance: ETHINYL ESTRADIOL\ETONOGESTREL
     Indication: CONTRACEPTION
     Route: 067
     Dates: start: 20080911, end: 20090222

REACTIONS (7)
  - Pulmonary oedema [Unknown]
  - Tendon rupture [Unknown]
  - Pulmonary embolism [Fatal]
  - Ovarian cyst [Unknown]
  - Lymphoid tissue hyperplasia [Unknown]
  - Tendonitis [Recovering/Resolving]
  - Renal atrophy [Unknown]

NARRATIVE: CASE EVENT DATE: 2009
